FAERS Safety Report 14674183 (Version 1)
Quarter: 2018Q1

REPORT INFORMATION
  Report Type: Spontaneous
  Country: US (occurrence: US)
  Receive Date: 20180323
  Receipt Date: 20180323
  Transmission Date: 20180509
  Serious: No
  Sender: FDA-Public Use
  Company Number: US-PERRIGO-17US027168

PATIENT
  Age: 85 Year
  Sex: Female
  Weight: 49.89 kg

DRUGS (2)
  1. ACETAMINOPHEN. [Suspect]
     Active Substance: ACETAMINOPHEN
     Dosage: 1300 MG IN AM, 650 MG IN AFTERNOON, 650 MG NIGHTLY
     Route: 048
     Dates: start: 20170918
  2. ACETAMINOPHEN. [Suspect]
     Active Substance: ACETAMINOPHEN
     Indication: ARTHRALGIA
     Dosage: 1300 MG, TID
     Route: 048
     Dates: start: 201708, end: 20170917

REACTIONS (2)
  - Underdose [Unknown]
  - Incorrect drug administration duration [Unknown]

NARRATIVE: CASE EVENT DATE: 201708
